FAERS Safety Report 4448531-2 (Version None)
Quarter: 2004Q3

REPORT INFORMATION
  Report Type: 
  Country: None (occurrence: None)
  Receive Date: 20040909
  Receipt Date: 20040824
  Transmission Date: 20050211
  Serious: Yes (Death)
  Sender: FDA-Public Use
  Company Number: JP_040804278

PATIENT
  Age: 63 Year
  Sex: Male

DRUGS (2)
  1. GEMZAR [Suspect]
     Indication: LUNG NEOPLASM MALIGNANT
     Dosage: 800 MG OTHER
     Dates: start: 20040701, end: 20040101
  2. CAMPTOSAR [Concomitant]

REACTIONS (1)
  - INTERSTITIAL LUNG DISEASE [None]
